FAERS Safety Report 19441931 (Version 1)
Quarter: 2021Q2

REPORT INFORMATION
  Report Type: Spontaneous
  Country: CA (occurrence: CA)
  Receive Date: 20210621
  Receipt Date: 20210621
  Transmission Date: 20210717
  Serious: Yes (Other)
  Sender: FDA-Public Use
  Company Number: CA-HLS-202107610

PATIENT
  Age: 23 Year
  Sex: Female

DRUGS (22)
  1. ZUCLOPENTHIXOL HYDROCHLORIDE [Suspect]
     Active Substance: ZUCLOPENTHIXOL HYDROCHLORIDE
     Indication: SCHIZOPHRENIA
     Route: 065
  2. ZUCLOPENTHIXOL [Suspect]
     Active Substance: ZUCLOPENTHIXOL
     Indication: SCHIZOPHRENIA
     Route: 065
  3. LATUDA [Suspect]
     Active Substance: LURASIDONE HYDROCHLORIDE
     Indication: SCHIZOPHRENIA
     Route: 065
  4. CLOZAPINE. [Suspect]
     Active Substance: CLOZAPINE
     Indication: SCHIZOPHRENIA
     Route: 065
  5. ZUCLOPENTHIXOL ACETATE [Suspect]
     Active Substance: ZUCLOPENTHIXOL ACETATE
     Indication: SCHIZOPHRENIA
     Route: 065
  6. QUETIAPINE. [Suspect]
     Active Substance: QUETIAPINE
     Indication: SCHIZOPHRENIA
     Route: 065
  7. ARIPIPRAZOLE. [Concomitant]
     Active Substance: ARIPIPRAZOLE
     Indication: SCHIZOPHRENIA
     Route: 065
  8. ZYPREXA [Suspect]
     Active Substance: OLANZAPINE
     Indication: SCHIZOPHRENIA
     Route: 065
  9. ZIPRASIDONE MESILATE [Suspect]
     Active Substance: ZIPRASIDONE MESYLATE
     Indication: SCHIZOPHRENIA
     Route: 065
  10. RISPERIDONE. [Suspect]
     Active Substance: RISPERIDONE
     Indication: SCHIZOPHRENIA
     Route: 065
  11. QUETIAPINE FUMARATE. [Suspect]
     Active Substance: QUETIAPINE FUMARATE
     Indication: SCHIZOPHRENIA
     Route: 065
  12. PALIPERIDONE PALMITATE [Suspect]
     Active Substance: PALIPERIDONE PALMITATE
     Indication: SCHIZOPHRENIA
     Route: 065
  13. PALIPERIDONE. [Suspect]
     Active Substance: PALIPERIDONE
     Indication: SCHIZOPHRENIA
     Route: 065
  14. INVEGA [Suspect]
     Active Substance: PALIPERIDONE
     Indication: SCHIZOPHRENIA
     Route: 065
  15. OLANZAPINE. [Suspect]
     Active Substance: OLANZAPINE
     Indication: SCHIZOPHRENIA
     Route: 065
  16. RISPERDAL [Concomitant]
     Active Substance: RISPERIDONE
     Indication: SCHIZOPHRENIA
     Route: 065
  17. LURASIDONE HYDROCHLORIDE. [Suspect]
     Active Substance: LURASIDONE HYDROCHLORIDE
     Indication: SCHIZOPHRENIA
     Route: 065
  18. ZUCLOPENTHIXOL DECANOATE [Suspect]
     Active Substance: ZUCLOPENTHIXOL DECANOATE
     Indication: SCHIZOPHRENIA
     Route: 065
  19. ZIPRASIDONE HYDROCHLORIDE. [Suspect]
     Active Substance: ZIPRASIDONE HYDROCHLORIDE
     Indication: SCHIZOPHRENIA
     Route: 065
  20. SAPHRIS [Suspect]
     Active Substance: ASENAPINE MALEATE
     Indication: SCHIZOPHRENIA
     Route: 065
  21. FLUPENTIXOL DECANOATE [Suspect]
     Active Substance: FLUPENTIXOL DECANOATE
     Indication: SCHIZOPHRENIA
     Route: 065
  22. ABILIFY MAINTENA [Suspect]
     Active Substance: ARIPIPRAZOLE
     Indication: SCHIZOPHRENIA
     Route: 065

REACTIONS (14)
  - Condition aggravated [Unknown]
  - Adverse drug reaction [Unknown]
  - Disturbance in social behaviour [Unknown]
  - Suicide attempt [Unknown]
  - Blood glucose increased [Unknown]
  - Sexual dysfunction [Unknown]
  - Blood prolactin abnormal [Unknown]
  - Dystonia [Unknown]
  - Metabolic disorder [Unknown]
  - Sedation [Unknown]
  - Drug ineffective [Unknown]
  - Personality change [Unknown]
  - Anosognosia [Unknown]
  - Dyskinesia [Unknown]
